FAERS Safety Report 15281487 (Version 2)
Quarter: 2018Q3

REPORT INFORMATION
  Report Type: Other
  Country: SE (occurrence: SE)
  Receive Date: 20180815
  Receipt Date: 20180917
  Transmission Date: 20181010
  Serious: Yes (Death)
  Sender: FDA-Public Use
  Company Number: SE-ARALEZ PHARMACEUTICALS R+D INC.-2018-ARA-002026

PATIENT
  Age: 73 Year
  Sex: Female

DRUGS (27)
  1. METOPROLOL SUCCINATE. [Suspect]
     Active Substance: METOPROLOL SUCCINATE
     Indication: ANGINA PECTORIS
     Dosage: 50 MG, DAILY
     Route: 048
     Dates: start: 19950613
  2. DIFLUCAN [Concomitant]
     Active Substance: FLUCONAZOLE
  3. CALCICHEW?D3 [Concomitant]
     Active Substance: CALCIUM\CHOLECALCIFEROL
  4. METOPROLOL SUCCINATE. [Suspect]
     Active Substance: METOPROLOL SUCCINATE
     Indication: HYPERTENSION
     Dosage: 50 MG, UNK
     Route: 048
  5. REPLENS [Concomitant]
     Active Substance: CARBOMER 934\GLYCERIN\METHYLPARABEN\PROPYLPARABEN\SODIUM HYDROXIDE
     Dosage: UNK
  6. FOLACIN                            /00024201/ [Concomitant]
     Active Substance: FOLIC ACID
  7. IMOVANE [Concomitant]
     Active Substance: ZOPICLONE
     Dosage: UNK
  8. MORFIN                             /00036301/ [Concomitant]
     Active Substance: MORPHINE SULFATE
     Dosage: UNK
  9. TAMOXIFEN [Concomitant]
     Active Substance: TAMOXIFEN
     Dosage: UNK
  10. OCULAC                             /01001802/ [Concomitant]
  11. DUROGESIC [Concomitant]
     Active Substance: FENTANYL
  12. TROMBYL [Concomitant]
     Active Substance: ASPIRIN
  13. ENALAPRIL [Concomitant]
     Active Substance: ENALAPRIL
     Dosage: UNK
  14. FLUORETTE [Concomitant]
     Dosage: UNK
  15. BETOLVIDON [Concomitant]
     Active Substance: CYANOCOBALAMIN
  16. DENTAN [Concomitant]
     Active Substance: SODIUM FLUORIDE
  17. VISCOTEARS [Concomitant]
     Active Substance: CARBOMER
  18. NASONEX [Concomitant]
     Active Substance: MOMETASONE FUROATE
     Dosage: UNK
  19. PROLIA [Concomitant]
     Active Substance: DENOSUMAB
     Dosage: UNK
  20. CARDIZEM RETARD [Suspect]
     Active Substance: DILTIAZEM HYDROCHLORIDE
     Indication: ANGINA PECTORIS
     Dosage: 240 MG, DAILY
     Route: 048
     Dates: start: 20010214
  21. XERODENT                           /01274201/ [Concomitant]
     Dosage: UNK
  22. IMDUR [Concomitant]
     Active Substance: ISOSORBIDE MONONITRATE
  23. PREDNISOLON                        /00016201/ [Concomitant]
     Active Substance: PREDNISOLONE
     Dosage: UNK
  24. PREDNISOLONE. [Concomitant]
     Active Substance: PREDNISOLONE
     Dosage: UNK
  25. NATRIUMFLUORID [Concomitant]
  26. URSOFALK [Concomitant]
     Active Substance: URSODIOL
     Dosage: UNK
  27. RINEXIN [Concomitant]
     Active Substance: PHENYLPROPANOLAMINE
     Dosage: UNK

REACTIONS (4)
  - Hypotension [Fatal]
  - Bradycardia [Fatal]
  - Accidental overdose [Fatal]
  - Toxicity to various agents [Fatal]

NARRATIVE: CASE EVENT DATE: 201805
